FAERS Safety Report 7234840-0 (Version None)
Quarter: 2011Q1

REPORT INFORMATION
  Report Type: 
  Country: None (occurrence: None)
  Receive Date: 20110114
  Receipt Date: 20110114
  Transmission Date: 20110831
  Serious: Yes (Other)
  Sender: FDA-Public Use
  Company Number: None

PATIENT
  Age: 87 Year
  Sex: Female
  Weight: 61.2356 kg

DRUGS (10)
  1. DIOVAN [Concomitant]
  2. NORVASC [Concomitant]
  3. SINGULAIR [Concomitant]
  4. LEVAQUIN [Concomitant]
  5. MEVACOR [Concomitant]
  6. LOVENOX [Suspect]
     Indication: THROMBOSIS PROPHYLAXIS
     Dosage: 30MG Q24H SQ
     Dates: start: 20110108, end: 20110111
  7. MORPHINE [Concomitant]
  8. NEXIUM [Concomitant]
  9. CLEOCIN [Concomitant]
  10. ASPIRIN [Concomitant]

REACTIONS (2)
  - INTRA-ABDOMINAL HAEMATOMA [None]
  - CONTUSION [None]
